FAERS Safety Report 6780967-7 (Version None)
Quarter: 2010Q2

REPORT INFORMATION
  Report Type: 
  Country: None (occurrence: None)
  Receive Date: 20100621
  Receipt Date: 20100609
  Transmission Date: 20101027
  Serious: Yes (Death, Hospitalization)
  Sender: FDA-Public Use
  Company Number: US-ELI_LILLY_AND_COMPANY-US201006002540

PATIENT
  Sex: Male

DRUGS (11)
  1. GEMCITABINE HYDROCHLORIDE [Suspect]
     Indication: PANCREATIC CARCINOMA
     Dosage: 1000 MG/M2, UNK
     Dates: start: 20100517
  2. PACLITAXEL [Suspect]
     Indication: PANCREATIC CARCINOMA
     Dosage: 125 MG/M2, UNK
     Dates: start: 20100517
  3. PHENERGAN [Concomitant]
     Indication: PROPHYLAXIS
     Dates: start: 20100517
  4. PRILOSEC [Concomitant]
     Indication: GASTROOESOPHAGEAL REFLUX DISEASE
     Dates: start: 20080101
  5. NORVASC [Concomitant]
     Indication: HYPERTENSION
     Dates: start: 20080101
  6. SIMVASTATIN [Concomitant]
     Indication: HYPERLIPIDAEMIA
     Dates: start: 20080101
  7. HYDROCHLORTHIAZID [Concomitant]
     Indication: HYPERTENSION
     Dates: start: 20080101
  8. STOOL SOFTENER [Concomitant]
     Indication: CONSTIPATION
     Dates: start: 20100524
  9. MEGACE [Concomitant]
     Indication: DECREASED APPETITE
     Dates: start: 20100602
  10. METRONIDAZOLE [Concomitant]
  11. PIPERACILLIN W/TAZOBACTAM [Concomitant]

REACTIONS (2)
  - NEUTROPENIA [None]
  - SEPSIS [None]
